FAERS Safety Report 24621085 (Version 2)
Quarter: 2024Q4

REPORT INFORMATION
  Report Type: Report from Study
  Country: DE (occurrence: DE)
  Receive Date: 20241114
  Receipt Date: 20241211
  Transmission Date: 20250115
  Serious: Yes (Hospitalization)
  Sender: BOEHRINGER INGELHEIM
  Company Number: DE-BoehringerIngelheim-2024-BI-041882

PATIENT
  Age: 71 Year
  Sex: Male
  Weight: 63.8 kg

DRUGS (1)
  1. NINTEDANIB [Suspect]
     Active Substance: NINTEDANIB
     Indication: Interstitial lung disease
     Route: 048
     Dates: start: 20220908

REACTIONS (4)
  - Pneumonia [Recovered/Resolved]
  - Interstitial lung disease [Recovered/Resolved]
  - General physical health deterioration [Recovered/Resolved with Sequelae]
  - Lung infiltration [Recovered/Resolved]

NARRATIVE: CASE EVENT DATE: 20231121
